FAERS Safety Report 8606716-5 (Version None)
Quarter: 2012Q3

REPORT INFORMATION
  Report Type: 
  Country: None (occurrence: None)
  Receive Date: 20120820
  Receipt Date: 20120816
  Transmission Date: 20120928
  Serious: Yes (Other)
  Sender: FDA-Public Use
  Company Number: BR-BAYER-2012-084389

PATIENT
  Sex: Male
  Weight: 83 kg

DRUGS (6)
  1. ATENOLOL [Concomitant]
     Indication: HYPERTENSION
     Dosage: 20 MG, QD
     Route: 048
  2. CIALIS [Concomitant]
     Indication: URETHRAL DISORDER
     Dosage: 1 DF, QOD
     Route: 048
     Dates: start: 20090101
  3. ROSUVASTATIN [Concomitant]
     Indication: BLOOD CHOLESTEROL INCREASED
     Dosage: 20 MG, QD
     Route: 048
     Dates: start: 20100101
  4. ASPIRIN [Suspect]
     Indication: BLOOD DISORDER
     Dosage: 1 DF, QD
     Route: 048
     Dates: start: 19930101
  5. ROXFLAN [Concomitant]
     Indication: HYPERTENSION
     Dosage: 5 MG, QD
     Route: 048
     Dates: start: 20020101
  6. TANSULON [Concomitant]
     Indication: URETHRAL DISORDER
     Dosage: 1 DF, QOD
     Route: 048
     Dates: start: 20090101

REACTIONS (3)
  - PROSTATE CANCER [None]
  - DRY SKIN [None]
  - SKIN DISORDER [None]
